FAERS Safety Report 5093547-9 (Version None)
Quarter: 2006Q3

REPORT INFORMATION
  Report Type: 
  Country: None (occurrence: None)
  Receive Date: 20060829
  Receipt Date: 20060816
  Transmission Date: 20061208
  Serious: Yes (Other)
  Sender: FDA-Public Use
  Company Number: 2006100180

PATIENT
  Age: 63 Year
  Sex: Male
  Weight: 96.1626 kg

DRUGS (2)
  1. GENOTROPIN [Suspect]
     Indication: HYPOPITUITARISM
     Dosage: SUBCUTANEOUS
     Route: 058
  2. SYNTHROID [Concomitant]

REACTIONS (2)
  - HYPERSENSITIVITY [None]
  - PERIORBITAL OEDEMA [None]
